FAERS Safety Report 6048430-9 (Version None)
Quarter: 2009Q1

REPORT INFORMATION
  Report Type: 
  Country: None (occurrence: None)
  Receive Date: 20090123
  Receipt Date: 20090116
  Transmission Date: 20090719
  Serious: Yes (Other)
  Sender: FDA-Public Use
  Company Number: A0764591A

PATIENT
  Age: 59 Year
  Sex: Male
  Weight: 75.9 kg

DRUGS (7)
  1. AVANDIA [Suspect]
     Dosage: 8MG PER DAY
     Route: 048
     Dates: start: 20000101, end: 20070901
  2. GLUCOTROL [Concomitant]
  3. JANUVIA [Concomitant]
  4. LIPITOR [Concomitant]
  5. VIOXX [Concomitant]
  6. CELEBREX [Concomitant]
  7. FINASTERIDE [Concomitant]

REACTIONS (1)
  - CEREBROVASCULAR ACCIDENT [None]
